FAERS Safety Report 19732379 (Version 1)
Quarter: 2021Q3

REPORT INFORMATION
  Report Type: Spontaneous
  Country: US (occurrence: US)
  Receive Date: 20210822
  Receipt Date: 20210822
  Transmission Date: 20211014
  Serious: No
  Sender: FDA-Public Use
  Company Number: US-AMGEN-USASP2021127445

PATIENT
  Sex: Male

DRUGS (11)
  1. OXYCODONE AND ACETAMINOPHEN [Concomitant]
     Active Substance: ACETAMINOPHEN\OXYCODONE HYDROCHLORIDE
  2. ENBREL [Suspect]
     Active Substance: ETANERCEPT
     Indication: PSORIASIS
     Dosage: 50 MILLIGRAM, QWK
     Route: 058
  3. HYDROCHLOROTHIAZIDE. [Concomitant]
     Active Substance: HYDROCHLOROTHIAZIDE
  4. FINASTERIDE. [Concomitant]
     Active Substance: FINASTERIDE
  5. ALBUTEROL SULFATE. [Concomitant]
     Active Substance: ALBUTEROL SULFATE
  6. ALLOPURINOL. [Concomitant]
     Active Substance: ALLOPURINOL
  7. POTASSIUM CITRATE. [Concomitant]
     Active Substance: POTASSIUM CITRATE
  8. LABETALOL HCL [Concomitant]
     Active Substance: LABETALOL HYDROCHLORIDE
  9. GABAPENTIN. [Concomitant]
     Active Substance: GABAPENTIN
  10. MELOXICAM. [Concomitant]
     Active Substance: MELOXICAM
  11. TAMSULOSIN HCL [Concomitant]
     Active Substance: TAMSULOSIN HYDROCHLORIDE

REACTIONS (1)
  - Product dose omission issue [Unknown]
